FAERS Safety Report 5991182-9 (Version None)
Quarter: 2008Q4

REPORT INFORMATION
  Report Type: 
  Country: None (occurrence: None)
  Receive Date: 20081211
  Receipt Date: 20081202
  Transmission Date: 20090506
  Serious: Yes (Life-Threatening, Hospitalization)
  Sender: FDA-Public Use
  Company Number: US-JNJFOC-20081201041

PATIENT
  Age: 58 Year
  Sex: Female

DRUGS (1)
  1. INTELENCE [Suspect]
     Indication: HIV INFECTION

REACTIONS (4)
  - HEPATIC FAILURE [None]
  - OEDEMA PERIPHERAL [None]
  - RENAL FAILURE [None]
  - STEVENS-JOHNSON SYNDROME [None]
